FAERS Safety Report 6767750-3 (Version None)
Quarter: 2010Q2

REPORT INFORMATION
  Report Type: 
  Country: None (occurrence: None)
  Receive Date: 20100614
  Receipt Date: 20100609
  Transmission Date: 20101027
  Serious: Yes (Death, Hospitalization)
  Sender: FDA-Public Use
  Company Number: FR-ROCHE-708438

PATIENT
  Sex: Male

DRUGS (11)
  1. ROVALCYTE [Suspect]
     Indication: DRUG USE FOR UNKNOWN INDICATION
     Dosage: FORM: COATED TABLETS
     Route: 048
     Dates: start: 20100512, end: 20100529
  2. CLINDAMYCIN HCL [Suspect]
     Indication: DRUG USE FOR UNKNOWN INDICATION
     Dosage: FORM: INJECTABLE SOLUTION
     Route: 042
     Dates: start: 20100514, end: 20100528
  3. CELLCEPT [Concomitant]
  4. CALCIPARINE [Concomitant]
     Dates: start: 20100512, end: 20100525
  5. PREVISCAN [Concomitant]
     Dates: start: 20100517
  6. CORDARONE [Concomitant]
     Dates: start: 20100512
  7. CORTANCYL [Concomitant]
  8. RAMIPRIL [Concomitant]
  9. NEXIUM [Concomitant]
  10. TENORMIN [Concomitant]
  11. FUNGIZONE [Concomitant]

REACTIONS (2)
  - NEUTROPENIA [None]
  - SEPTIC SHOCK [None]
